FAERS Safety Report 17092859 (Version 1)
Quarter: 2019Q4

REPORT INFORMATION
  Report Type: Spontaneous
  Country: US (occurrence: US)
  Receive Date: 20191101
  Receipt Date: 20191101
  Transmission Date: 20200122
  Serious: Yes (Life-Threatening, Disabling, Other)
  Sender: FDA-Public Use
  Company Number: None

PATIENT
  Age: 38 Year
  Sex: Female
  Weight: 88.45 kg

DRUGS (1)
  1. RISPERDAL [Suspect]
     Active Substance: RISPERIDONE
     Dosage: ?          OTHER DOSE:2 TO 3 MG;?
     Route: 048

REACTIONS (5)
  - Cognitive disorder [None]
  - Schizophrenia [None]
  - Musculoskeletal disorder [None]
  - Tay-Sachs disease [None]
  - Dissociative identity disorder [None]
